FAERS Safety Report 26025934 (Version 1)
Quarter: 2025Q4

REPORT INFORMATION
  Report Type: Spontaneous
  Country: US (occurrence: None)
  Receive Date: 20251110
  Receipt Date: 20251110
  Transmission Date: 20260118
  Serious: Yes (Other)
  Sender: FDA-CTU
  Company Number: None

PATIENT
  Age: 61 Year
  Sex: Male
  Weight: 96.75 kg

DRUGS (9)
  1. TAMSULOSIN [Suspect]
     Active Substance: TAMSULOSIN
     Indication: Urinary retention
     Dosage: OTHER QUANTITY : 1 CAPSULE(S);?
     Route: 048
     Dates: start: 20251025, end: 20251107
  2. DEVICE [Concomitant]
     Active Substance: DEVICE
  3. ketacasanol lotion [Concomitant]
  4. OMEPRAZOLE [Concomitant]
     Active Substance: OMEPRAZOLE
  5. CREON [Concomitant]
     Active Substance: PANCRELIPASE AMYLASE\PANCRELIPASE LIPASE\PANCRELIPASE PROTEASE
  6. PRAVASTATIN [Concomitant]
     Active Substance: PRAVASTATIN
  7. IBUPROFEN [Concomitant]
     Active Substance: IBUPROFEN
  8. ZINC [Concomitant]
     Active Substance: ZINC
  9. POTASSIUM [Concomitant]
     Active Substance: POTASSIUM

REACTIONS (4)
  - Nervousness [None]
  - Anxiety [None]
  - Tachyphrenia [None]
  - Depression [None]

NARRATIVE: CASE EVENT DATE: 20251107
